FAERS Safety Report 7298707-4 (Version None)
Quarter: 2011Q1

REPORT INFORMATION
  Report Type: 
  Country: None (occurrence: None)
  Receive Date: 20110217
  Receipt Date: 20110208
  Transmission Date: 20110831
  Serious: Yes (Hospitalization, Other)
  Sender: FDA-Public Use
  Company Number: DE-PFIZER INC-2010014957

PATIENT
  Age: 47 Year
  Sex: Male
  Weight: 83 kg

DRUGS (20)
  1. SOMATROPIN [Suspect]
     Indication: GROWTH HORMONE DEFICIENCY
     Dosage: 0.4 MG, 1X/DAY
     Route: 058
     Dates: start: 19970428, end: 19970811
  2. NEBIDO [Concomitant]
     Indication: HYPOGONADISM
  3. SOMATROPIN [Suspect]
     Dosage: 1.2 MG, 1X/DAY
     Route: 058
     Dates: start: 19990209, end: 19990818
  4. SOMATROPIN [Suspect]
     Dosage: 0.5 MG, 1X/DAY
     Route: 058
     Dates: start: 20050311, end: 20050926
  5. PRIMOGONYL [Concomitant]
     Indication: BLOOD LUTEINISING HORMONE DECREASED
     Dosage: 500 IU, UNK
     Dates: start: 19941001
  6. SOMATROPIN [Suspect]
     Dosage: 0.4 MG, 1X/DAY
     Route: 058
     Dates: start: 20050927, end: 20100128
  7. FOLLICLE-STIMULATING HORMONE, HUMAN [Concomitant]
     Indication: BLOOD LUTEINISING HORMONE DECREASED
     Dosage: 75 IU, WEEKLY
     Dates: start: 19941001
  8. DESMOGALEN [Concomitant]
     Indication: BLOOD THYROID STIMULATING HORMONE DECREASED
     Dosage: 0.1 UNK, 1X/DAY
     Route: 045
     Dates: start: 20050927
  9. MENOGON [Concomitant]
     Indication: HYPOGONADISM
  10. DESMOGALEN [Concomitant]
     Indication: PRIMARY HYPOTHYROIDISM
  11. DESMOPRESSIN ACETATE [Concomitant]
     Dosage: UNK
     Dates: start: 20050311
  12. SOMATROPIN [Suspect]
     Dosage: 0.4 MG, 1X/DAY
     Route: 058
     Dates: start: 19990819, end: 20050310
  13. NEBIDO [Concomitant]
     Indication: BLOOD LUTEINISING HORMONE DECREASED
     Dosage: 1000 MG, EVERY 3 MONTHS
     Route: 030
     Dates: start: 20060202
  14. NEBIDO [Concomitant]
     Indication: BLOOD FOLLICLE STIMULATING HORMONE DECREASED
  15. PRIMOGONYL [Concomitant]
     Indication: HYPOGONADISM
  16. FOLLICLE-STIMULATING HORMONE, HUMAN [Concomitant]
     Indication: BLOOD FOLLICLE STIMULATING HORMONE DECREASED
  17. MENOGON [Concomitant]
     Indication: BLOOD LUTEINISING HORMONE DECREASED
     Dosage: 75 IU, WEEKLY
     Dates: start: 19941001
  18. PRIMOGONYL [Concomitant]
     Indication: BLOOD FOLLICLE STIMULATING HORMONE DECREASED
  19. FOLLICLE-STIMULATING HORMONE, HUMAN [Concomitant]
     Indication: HYPOGONADISM
  20. MENOGON [Concomitant]
     Indication: BLOOD FOLLICLE STIMULATING HORMONE DECREASED

REACTIONS (2)
  - CHONDROSARCOMA RECURRENT [None]
  - CHONDROSARCOMA [None]
